FAERS Safety Report 21419319 (Version 3)
Quarter: 2023Q1

REPORT INFORMATION
  Report Type: Spontaneous
  Country: GB (occurrence: GB)
  Receive Date: 20221006
  Receipt Date: 20230306
  Transmission Date: 20230417
  Serious: Yes (Hospitalization, Disabling, Other)
  Sender: FDA-Public Use
  Company Number: GB-MHRA-MED-202209301600444270-JSRBZ

PATIENT
  Age: 42 Year
  Sex: Female

DRUGS (1)
  1. CIPROFLOXACIN [Suspect]
     Active Substance: CIPROFLOXACIN
     Indication: Product used for unknown indication
     Dosage: UNK
     Route: 065

REACTIONS (32)
  - Panic attack [Not Recovered/Not Resolved]
  - Dysphagia [Unknown]
  - Poor quality sleep [Unknown]
  - Loss of employment [Not Recovered/Not Resolved]
  - Fear of death [Not Recovered/Not Resolved]
  - Muscle fatigue [Not Recovered/Not Resolved]
  - Respiratory fatigue [Recovering/Resolving]
  - Insomnia [Unknown]
  - Costochondritis [Recovering/Resolving]
  - Palpitations [Not Recovered/Not Resolved]
  - Swollen tongue [Unknown]
  - Chest discomfort [Unknown]
  - Limb discomfort [Unknown]
  - Muscular weakness [Not Recovered/Not Resolved]
  - Tendon pain [Not Recovered/Not Resolved]
  - Hypoaesthesia oral [Recovered/Resolved]
  - Tendonitis [Not Recovered/Not Resolved]
  - Headache [Unknown]
  - Anxiety [Not Recovered/Not Resolved]
  - Hypoaesthesia [Recovered/Resolved]
  - Depression [Not Recovered/Not Resolved]
  - Asthenia [Not Recovered/Not Resolved]
  - Malaise [Unknown]
  - Neuropathy peripheral [Unknown]
  - Decreased appetite [Unknown]
  - Chest pain [Unknown]
  - Tremor [Unknown]
  - Pain in extremity [Unknown]
  - Intrusive thoughts [Unknown]
  - Depersonalisation/derealisation disorder [Unknown]
  - Nervous system disorder [Unknown]
  - Fatigue [Unknown]
